FAERS Safety Report 24294270 (Version 1)
Quarter: 2024Q3

REPORT INFORMATION
  Report Type: Spontaneous
  Country: US (occurrence: US)
  Receive Date: 20240906
  Receipt Date: 20240906
  Transmission Date: 20241016
  Serious: No
  Sender: DOMPE FARMACEUTICI
  Company Number: US-FARMAPROD-202406-2325

PATIENT
  Sex: Male

DRUGS (24)
  1. OXERVATE [Suspect]
     Active Substance: CENEGERMIN-BKBJ
     Indication: Ulcerative keratitis
     Route: 047
     Dates: start: 20240618
  2. OXERVATE [Suspect]
     Active Substance: CENEGERMIN-BKBJ
     Indication: Neurotrophic keratopathy
  3. OXERVATE [Suspect]
     Active Substance: CENEGERMIN-BKBJ
     Indication: Hypoaesthesia eye
  4. CLEAR EYES COMPLETE [Concomitant]
     Active Substance: HYPROMELLOSE 2906 (4000 MPA.S)\NAPHAZOLINE HYDROCHLORIDE\POLYSORBATE 80\ZINC SULFATE HEPTAHYDRATE
  5. REFRESH RELIEVA PF [Concomitant]
     Active Substance: CARBOXYMETHYLCELLULOSE SODIUM\GLYCERIN
     Dosage: 0.5%-0.9%
  6. NM-6603 [Concomitant]
     Active Substance: NM-6603
  7. VITAMIN D-400 [Concomitant]
  8. CALCIUM-MAG-ZINC-VITAMIN D3 [Concomitant]
  9. MULTIVITAMIN 50 PLUS [Concomitant]
  10. HERBALS\SAW PALMETTO [Concomitant]
     Active Substance: HERBALS\SAW PALMETTO
  11. ASIAN GINSENG [Concomitant]
     Active Substance: ASIAN GINSENG
  12. CARVEDILOL [Concomitant]
     Active Substance: CARVEDILOL
  13. TRAMADOL HCL [Concomitant]
     Active Substance: TRAMADOL HYDROCHLORIDE
  14. PANTOPRAZOLE SODIUM [Concomitant]
     Active Substance: PANTOPRAZOLE SODIUM
  15. AMLODIPINE BESYLATE [Concomitant]
     Active Substance: AMLODIPINE BESYLATE
  16. ASPIRIN [Concomitant]
     Active Substance: ASPIRIN
  17. ZETIA [Concomitant]
     Active Substance: EZETIMIBE
  18. IBUPROFEN [Concomitant]
     Active Substance: IBUPROFEN
  19. DEXTROMETHORPHAN HYDROBROMIDE\GUAIFENESIN [Concomitant]
     Active Substance: DEXTROMETHORPHAN HYDROBROMIDE\GUAIFENESIN
     Dosage: EXTENDED RELEASE
  20. STOOL SOFTENER-LAXATIVE [Concomitant]
  21. LISINOPRIL [Concomitant]
     Active Substance: LISINOPRIL
  22. POLYMYXIN B SUL-TRIMETHOPRIM [Concomitant]
  23. GATIFLOXACIN [Concomitant]
     Active Substance: GATIFLOXACIN
  24. CELEBREX [Concomitant]
     Active Substance: CELECOXIB

REACTIONS (5)
  - Eye pain [Unknown]
  - Ocular discomfort [Unknown]
  - Eye discharge [Unknown]
  - Photophobia [Unknown]
  - Balance disorder [Unknown]
